FAERS Safety Report 10803244 (Version 2)
Quarter: 2015Q1

REPORT INFORMATION
  Report Type: Report from Study
  Country: NL (occurrence: NL)
  Receive Date: 20150217
  Receipt Date: 20150304
  Transmission Date: 20150721
  Serious: Yes (Hospitalization)
  Sender: FDA-Public Use
  Company Number: NL-CELGENE-NLD-2015021652

PATIENT
  Age: 67 Year
  Sex: Female

DRUGS (17)
  1. MULT VIT. HAEMO [Concomitant]
     Indication: DIALYSIS
     Dosage: 18 DOSAGE FORMS
     Route: 048
     Dates: start: 20140121
  2. FENTANYL. [Concomitant]
     Active Substance: FENTANYL
     Indication: PAIN
     Dosage: 36 UG
     Route: 065
     Dates: start: 20140902
  3. FUROSEMIDE. [Concomitant]
     Active Substance: FUROSEMIDE
     Indication: PRODUCT USED FOR UNKNOWN INDICATION
     Dosage: 80 MILLIGRAM
     Route: 048
     Dates: start: 20140819
  4. PANTOPRAZOLE [Concomitant]
     Active Substance: PANTOPRAZOLE SODIUM
     Indication: PROPHYLAXIS AGAINST GASTROINTESTINAL ULCER
     Dosage: 26 IU (INTERNATIONAL UNIT)
     Route: 048
     Dates: start: 20140211
  5. DEXAMETHASONE. [Concomitant]
     Active Substance: DEXAMETHASONE
     Route: 048
     Dates: start: 20141107
  6. ARANESP [Concomitant]
     Active Substance: DARBEPOETIN ALFA
     Indication: ANAEMIA
     Dosage: 100 UG
     Route: 048
     Dates: start: 20140121
  7. INSTANYL [Concomitant]
     Active Substance: FENTANYL
     Indication: PAIN
     Dosage: 50 UG
     Route: 065
     Dates: start: 20140902
  8. CALCI CHEW [Concomitant]
     Indication: CALCIUM DEFICIENCY
     Route: 048
     Dates: start: 20141202
  9. REVLIMID [Suspect]
     Active Substance: LENALIDOMIDE
     Route: 048
     Dates: start: 20150101
  10. DEXAMETHASONE. [Concomitant]
     Active Substance: DEXAMETHASONE
     Indication: PLASMA CELL MYELOMA
     Dosage: 25 MILLIGRAM
     Route: 065
     Dates: start: 201401, end: 201405
  11. DEXAMETHASONE. [Concomitant]
     Active Substance: DEXAMETHASONE
     Dosage: 160 MILLIGRAM
     Route: 048
     Dates: start: 20140912, end: 20141010
  12. DEXAMETHASONE. [Concomitant]
     Active Substance: DEXAMETHASONE
     Dosage: 40 MILLIGRAM
     Route: 048
     Dates: start: 20141010, end: 20141107
  13. HYDROCOBAM [Concomitant]
     Indication: VITAMIN B12 DEFICIENCY
     Route: 048
     Dates: start: 20140121
  14. AMITRIPTYLIN [Concomitant]
     Active Substance: AMITRIPTYLINE
     Indication: NEUROPATHY PERIPHERAL
     Dosage: 3000 MILLIGRAM
     Route: 048
     Dates: start: 20140902
  15. REVLIMID [Suspect]
     Active Substance: LENALIDOMIDE
     Indication: PLASMA CELL MYELOMA
     Route: 048
     Dates: start: 20140912
  16. ASCAL CARBO [Concomitant]
     Indication: PRODUCT USED FOR UNKNOWN INDICATION
     Route: 048
     Dates: start: 20141111
  17. LANTUS [Concomitant]
     Active Substance: INSULIN GLARGINE
     Indication: DIABETES MELLITUS
     Route: 058
     Dates: start: 20140923

REACTIONS (1)
  - Arteriovenous fistula operation [Recovered/Resolved with Sequelae]

NARRATIVE: CASE EVENT DATE: 20150116
